FAERS Safety Report 8141314-1 (Version None)
Quarter: 2012Q1

REPORT INFORMATION
  Report Type: 
  Country: None (occurrence: None)
  Receive Date: 20120216
  Receipt Date: 20120206
  Transmission Date: 20120608
  Serious: Yes (Other)
  Sender: FDA-Public Use
  Company Number: US-ELI_LILLY_AND_COMPANY-US201202002619

PATIENT
  Age: 21 Year
  Sex: Female

DRUGS (3)
  1. CELEXA [Concomitant]
  2. STRATTERA [Suspect]
     Indication: ATTENTION DEFICIT/HYPERACTIVITY DISORDER
     Dosage: 60 MG, QD
     Dates: start: 20111201, end: 20120101
  3. LAMICTAL [Concomitant]

REACTIONS (4)
  - LOSS OF CONSCIOUSNESS [None]
  - ANXIETY [None]
  - MEMORY IMPAIRMENT [None]
  - IRRITABILITY [None]
